FAERS Safety Report 7787482-2 (Version None)
Quarter: 2011Q3

REPORT INFORMATION
  Report Type: 
  Country: None (occurrence: None)
  Receive Date: 20110929
  Receipt Date: 20110923
  Transmission Date: 20111222
  Serious: Yes (Death, Other)
  Sender: FDA-Public Use
  Company Number: US-AMGEN-USASP2011038360

PATIENT
  Age: 59 Year
  Sex: Male
  Weight: 102.9 kg

DRUGS (1)
  1. NPLATE [Suspect]
     Indication: IDIOPATHIC THROMBOCYTOPENIC PURPURA
     Dosage: 1 MUG/KG, QWK
     Route: 058
     Dates: start: 20100913, end: 20101129

REACTIONS (3)
  - DEATH [None]
  - HEPATITIS C [None]
  - JAUNDICE [None]
